FAERS Safety Report 8771018 (Version 2)
Quarter: 2012Q4

REPORT INFORMATION
  Report Type: 
  Country: US (occurrence: US)
  Receive Date: 20120906
  Receipt Date: 20121017
  Transmission Date: 20130627
  Serious: No
  Sender: FDA-Public Use
  Company Number: US-PFIZER INC-2012217895

PATIENT
  Age: 59 Year
  Sex: Female

DRUGS (5)
  1. PRISTIQ [Suspect]
     Indication: ANXIETY
     Dosage: 100 mg, 1x/day
     Route: 048
     Dates: start: 20110727
  2. TRAMADOL [Concomitant]
     Dosage: UNK
  3. PERCOCET [Concomitant]
     Dosage: UNK
  4. TRAZODONE [Concomitant]
     Dosage: UNK
  5. AMBIEN [Concomitant]
     Dosage: UNK

REACTIONS (2)
  - Medication residue [Recovered/Resolved]
  - Drug ineffective [Unknown]
